FAERS Safety Report 6354756-1 (Version None)
Quarter: 2009Q3

REPORT INFORMATION
  Report Type: 
  Country: None (occurrence: None)
  Receive Date: 20090909
  Receipt Date: 20090825
  Transmission Date: 20100115
  Serious: Yes (Hospitalization, Other)
  Sender: FDA-Public Use
  Company Number: AUR-APL-2009-00511

PATIENT
  Age: 48 Year
  Sex: Male

DRUGS (4)
  1. TOPIRAMATE [Suspect]
     Indication: EPILEPSY
     Dosage: 100MG - BID -
  2. POSACONAZOLE [Suspect]
     Indication: ASPERGILLOMA
     Dosage: 200MG - QID -
  3. VALPROATE SODIUM [Concomitant]
  4. AMPHOTERICIN B [Concomitant]

REACTIONS (9)
  - CATATONIA [None]
  - DECREASED APPETITE [None]
  - DRUG INTERACTION [None]
  - DRUG TOXICITY [None]
  - ENCEPHALOPATHY [None]
  - HYPOPHAGIA [None]
  - SOMNOLENCE [None]
  - STUPOR [None]
  - WEIGHT DECREASED [None]
